FAERS Safety Report 15228335 (Version 1)
Quarter: 2018Q3

REPORT INFORMATION
  Report Type: Spontaneous
  Country: FR (occurrence: FR)
  Receive Date: 20180801
  Receipt Date: 20180801
  Transmission Date: 20181010
  Serious: Yes (Other)
  Sender: FDA-Public Use
  Company Number: FR-MYLANLABS-2018M1055891

PATIENT
  Age: 50 Year
  Sex: Female

DRUGS (6)
  1. FLUOROURACIL. [Suspect]
     Active Substance: FLUOROURACIL
     Indication: BREAST CANCER
     Dosage: 2500 MG/M2, TOTAL
  2. DOXORUBICIN [Suspect]
     Active Substance: DOXORUBICIN
     Indication: BENIGN BREAST NEOPLASM
     Dosage: 300 MG/M2, TOTAL
  3. DOXORUBICIN [Suspect]
     Active Substance: DOXORUBICIN
     Indication: BREAST CANCER
  4. CYCLOPHOSPHAMIDE. [Suspect]
     Active Substance: CYCLOPHOSPHAMIDE
     Indication: BENIGN BREAST NEOPLASM
     Dosage: 2500 MG/M2, UNK
  5. CYCLOPHOSPHAMIDE. [Suspect]
     Active Substance: CYCLOPHOSPHAMIDE
     Indication: BREAST CANCER
  6. FLUOROURACIL. [Suspect]
     Active Substance: FLUOROURACIL
     Indication: BENIGN BREAST NEOPLASM

REACTIONS (2)
  - Acute promyelocytic leukaemia [Recovered/Resolved]
  - Second primary malignancy [Recovered/Resolved]
